FAERS Safety Report 4925930-3 (Version None)
Quarter: 2006Q1

REPORT INFORMATION
  Report Type: 
  Country: None (occurrence: None)
  Receive Date: 20060228
  Receipt Date: 20050418
  Transmission Date: 20060701
  Serious: No
  Sender: FDA-Public Use
  Company Number: US-GLAXOSMITHKLINE-A0554493A

PATIENT
  Age: 45 Year
  Sex: Female
  Weight: 65.5 kg

DRUGS (6)
  1. LAMICTAL [Suspect]
     Indication: BIPOLAR DISORDER
     Dosage: 50MG PER DAY
     Route: 048
  2. SYNTHROID [Concomitant]
  3. BISMUTH [Concomitant]
  4. STOOL SOFTENER [Concomitant]
  5. RANITIDINE [Concomitant]
  6. CALCIUM D [Concomitant]

REACTIONS (2)
  - HAEMANGIOMA [None]
  - SKIN DISCOLOURATION [None]
